FAERS Safety Report 7215513-7 (Version None)
Quarter: 2011Q1

REPORT INFORMATION
  Report Type: 
  Country: None (occurrence: None)
  Receive Date: 20110107
  Receipt Date: 20101228
  Transmission Date: 20110831
  Serious: Yes (Hospitalization)
  Sender: FDA-Public Use
  Company Number: B0691141A

PATIENT
  Sex: Female

DRUGS (4)
  1. ZOPHREN [Suspect]
     Indication: PREMEDICATION
     Dosage: 8MG PER DAY
     Route: 042
     Dates: start: 20101025, end: 20101025
  2. DEXAMETHASONE SODIUM PHOSPHATE [Suspect]
     Indication: PREMEDICATION
     Dosage: 20MG PER DAY
     Route: 042
     Dates: start: 20101025, end: 20101025
  3. CAELYX [Suspect]
     Indication: OVARIAN CANCER
     Dosage: 45MG CYCLIC
     Route: 042
     Dates: start: 20101025, end: 20101025
  4. TRABECTEDIN [Suspect]
     Indication: OVARIAN CANCER
     Dosage: 1.75MG CYCLIC
     Route: 042
     Dates: start: 20101025, end: 20101025

REACTIONS (3)
  - MALAISE [None]
  - DYSPNOEA [None]
  - PALPITATIONS [None]
